FAERS Safety Report 21879890 (Version 3)
Quarter: 2023Q1

REPORT INFORMATION
  Report Type: Spontaneous
  Country: RU (occurrence: RU)
  Receive Date: 20230118
  Receipt Date: 20230206
  Transmission Date: 20230418
  Serious: Yes (Hospitalization, Other)
  Sender: FDA-Public Use
  Company Number: RU-BRISTOL-MYERS SQUIBB COMPANY-2023-007916

PATIENT
  Sex: Female

DRUGS (2)
  1. ELIQUIS [Suspect]
     Active Substance: APIXABAN
     Indication: Embolism venous
     Dosage: TAKING ELIQUIS 5MG 3X/ DAY FOR ABOUT 5 DAYS: 2 TABLETS IN THE MORNING, 1 IN THE EVENING.
     Dates: start: 202211
  2. ELIQUIS [Suspect]
     Active Substance: APIXABAN
     Dates: start: 20221201

REACTIONS (4)
  - Arrhythmia [Unknown]
  - Intentional product use issue [Unknown]
  - Constipation [Unknown]
  - COVID-19 [Recovered/Resolved]

NARRATIVE: CASE EVENT DATE: 20221201
